FAERS Safety Report 6469002-8 (Version None)
Quarter: 2009Q4

REPORT INFORMATION
  Report Type: 
  Country: None (occurrence: None)
  Receive Date: 20091203
  Receipt Date: 20091123
  Transmission Date: 20100525
  Serious: Yes (Hospitalization, Other)
  Sender: FDA-Public Use
  Company Number: PHHY2009CA50947

PATIENT
  Sex: Female

DRUGS (1)
  1. DIOVAN [Suspect]
     Dosage: UNK
     Route: 048
     Dates: start: 20020201

REACTIONS (6)
  - HYSTERECTOMY [None]
  - OVARIAN ADENOMA [None]
  - OVARIAN CANCER [None]
  - OVARIAN OPERATION [None]
  - PELVIC NEOPLASM [None]
  - SALPINGO-OOPHORECTOMY BILATERAL [None]
